FAERS Safety Report 10744287 (Version 2)
Quarter: 2015Q4

REPORT INFORMATION
  Report Type: Spontaneous
  Country: JP (occurrence: JP)
  Receive Date: 20150128
  Receipt Date: 20151208
  Transmission Date: 20160304
  Serious: Yes (Other)
  Sender: FDA-Public Use
  Company Number: JP-ROCHE-1525938

PATIENT
  Sex: Male

DRUGS (1)
  1. HERCEPTIN [Suspect]
     Active Substance: TRASTUZUMAB
     Indication: PROSTATE CANCER
     Dosage: DOSAGE IS UNCERTAIN. ?THREE TIMES
     Route: 041
     Dates: start: 201412, end: 201505

REACTIONS (3)
  - Hepatic function abnormal [Unknown]
  - Infusion related reaction [Unknown]
  - Cardiac failure [Unknown]
